FAERS Safety Report 7552692-6 (Version None)
Quarter: 2011Q2

REPORT INFORMATION
  Report Type: 
  Country: None (occurrence: None)
  Receive Date: 20110616
  Receipt Date: 20110615
  Transmission Date: 20111010
  Serious: Yes (Death, Hospitalization)
  Sender: FDA-Public Use
  Company Number: PHHO1998GB01122

PATIENT
  Sex: Male
  Weight: 56.9 kg

DRUGS (2)
  1. NEORAL [Suspect]
  2. PLACEBO [Suspect]
     Route: 042
     Dates: start: 19980719

REACTIONS (2)
  - DEATH [None]
  - ASPERGILLOSIS [None]
